FAERS Safety Report 20365651 (Version 1)
Quarter: 2022Q1

REPORT INFORMATION
  Report Type: Spontaneous
  Country: US (occurrence: US)
  Receive Date: 20220123
  Receipt Date: 20220123
  Transmission Date: 20220423
  Serious: No
  Sender: FDA-Public Use
  Company Number: US-JNJFOC-20220124563

PATIENT
  Age: 71 Year
  Sex: Female

DRUGS (1)
  1. WOMENS ROGAINE [Suspect]
     Active Substance: MINOXIDIL
     Indication: Alopecia
     Dosage: 4 ML EVERYTIME ONCE A DAY, ?PRODUCT START DATE: 4 YEARS AGO
     Route: 065

REACTIONS (3)
  - Hair colour changes [Unknown]
  - Inappropriate schedule of product administration [Unknown]
  - Overdose [Unknown]
